FAERS Safety Report 9821125 (Version 1)
Quarter: 2013Q4

REPORT INFORMATION
  Report Type: Spontaneous
  Country: US (occurrence: None)
  Receive Date: 20131028
  Receipt Date: 20131028
  Transmission Date: 20140711
  Serious: Yes (Hospitalization)
  Sender: FDA-Public Use
  Company Number: 2013US001428

PATIENT
  Age: 30 Year
  Sex: Male
  Weight: 51.26 kg

DRUGS (6)
  1. ICLUSIG [Suspect]
     Indication: CHRONIC MYELOID LEUKAEMIA
     Route: 048
     Dates: start: 20130116, end: 20130329
  2. ACYCLOVIR (ACYCLOVIR) [Concomitant]
  3. ALLOPURINOL (ALLOPURINOL) [Concomitant]
  4. LOPRESSOR (METOPROLOL TARTRATE) [Concomitant]
  5. NORVASC (AMLODIPINE BESILATE) [Concomitant]
  6. MIRTAZAPINE (MIRTAZAPINE) [Concomitant]

REACTIONS (2)
  - Pyrexia [None]
  - Chronic myeloid leukaemia [None]
